FAERS Safety Report 21340443 (Version 1)
Quarter: 2022Q3

REPORT INFORMATION
  Report Type: Report from Study
  Country: None (occurrence: ES)
  Receive Date: 20220916
  Receipt Date: 20220916
  Transmission Date: 20221026
  Serious: No
  Sender: FDA-Public Use
  Company Number: ES-AKCEA THERAPEUTICS, INC.-2022IS003991

PATIENT
  Age: 59 Year
  Sex: Female

DRUGS (2)
  1. TEGSEDI [Suspect]
     Active Substance: INOTERSEN SODIUM
     Indication: Hereditary neuropathic amyloidosis
     Route: 058
     Dates: start: 20220228
  2. DEVICE [Suspect]
     Active Substance: DEVICE

REACTIONS (6)
  - Mean cell haemoglobin concentration decreased [Unknown]
  - Mean platelet volume increased [Unknown]
  - Urine leukocyte esterase positive [Unknown]
  - Urinary tract infection [Unknown]
  - Protein urine present [Unknown]
  - Platelet count decreased [Unknown]

NARRATIVE: CASE EVENT DATE: 20220901
